FAERS Safety Report 18053574 (Version 2)
Quarter: 2021Q2

REPORT INFORMATION
  Report Type: Spontaneous
  Country: JP (occurrence: JP)
  Receive Date: 20200722
  Receipt Date: 20210430
  Transmission Date: 20210717
  Serious: Yes (Hospitalization, Other)
  Sender: FDA-Public Use
  Company Number: JP-ELI_LILLY_AND_COMPANY-JP202007008166

PATIENT
  Age: 77 Year
  Sex: Female

DRUGS (28)
  1. FUROSEMIDE. [Concomitant]
     Active Substance: FUROSEMIDE
     Indication: CARDIAC FAILURE
     Dosage: 20 MG, UNKNOWN
  2. RISEDRONATE NA [Concomitant]
     Active Substance: RISEDRONATE SODIUM
     Indication: OSTEOPOROSIS
     Dosage: UNK, UNKNOWN
  3. PANIMYCIN [Concomitant]
     Active Substance: DIBEKACIN SULFATE
     Indication: CONJUNCTIVITIS
     Dosage: UNK, UNKNOWN
     Dates: start: 20180717
  4. ADCIRCA [Suspect]
     Active Substance: TADALAFIL
     Indication: PULMONARY ARTERIAL HYPERTENSION
     Dosage: 20 MG, DAILY
     Route: 065
  5. MUCOSOLVAN L [Concomitant]
     Active Substance: AMBROXOL HYDROCHLORIDE
     Indication: INTERSTITIAL LUNG DISEASE
     Dosage: 45 MG
  6. ETODOLAC. [Concomitant]
     Active Substance: ETODOLAC
     Indication: SJOGREN^S SYNDROME
     Dosage: UNK, UNKNOWN
  7. FOLIAMIN [FOLIC ACID] [Concomitant]
     Indication: FOLATE DEFICIENCY
     Dosage: 5 MG, UNKNOWN
  8. CAMOSTAT MESILATE [Concomitant]
     Active Substance: CAMOSTAT MESYLATE
     Indication: PANCREATITIS CHRONIC
     Dosage: 300 MG
  9. UPTRAVI [Suspect]
     Active Substance: SELEXIPAG
     Dosage: 0.6 MG, UNKNOWN
     Route: 048
     Dates: start: 20180214, end: 20180226
  10. AUGMENTIN [Suspect]
     Active Substance: AMOXICILLIN\CLAVULANATE POTASSIUM
     Indication: LYMPHOMA
     Dosage: UNK, TID
     Route: 048
     Dates: start: 20210204, end: 20210206
  11. TAKECAB [Concomitant]
     Active Substance: VONOPRAZAN FUMARATE
     Indication: GASTROOESOPHAGEAL REFLUX DISEASE
     Dosage: 10 MG
  12. GASMOTIN [Concomitant]
     Active Substance: MOSAPRIDE CITRATE
     Indication: CHRONIC GASTRITIS
     Dosage: UNK, UNKNOWN
  13. TOCOPHEROL [Concomitant]
     Active Substance: TOCOPHEROL
     Indication: HYPERLIPIDAEMIA
     Dosage: 300 MG
  14. REBAMIPIDE [Concomitant]
     Active Substance: REBAMIPIDE
     Indication: CHRONIC GASTRITIS
     Dosage: UNK, UNKNOWN
  15. BISOPROLOL FUMARATE. [Concomitant]
     Active Substance: BISOPROLOL FUMARATE
     Indication: CARDIAC FAILURE
     Dosage: UNK, UNKNOWN
     Dates: start: 20210218, end: 20210309
  16. EPADEL?S [Concomitant]
     Active Substance: ICOSAPENT ETHYL
     Indication: HYPERLIPIDAEMIA
     Dosage: UNK
  17. UPTRAVI [Suspect]
     Active Substance: SELEXIPAG
     Dosage: 0.4 MG, DAILY
     Route: 048
     Dates: start: 20180130, end: 20180213
  18. UPTRAVI [Suspect]
     Active Substance: SELEXIPAG
     Dosage: 0.8 MG, DAILY
     Route: 048
     Dates: start: 20180227
  19. OPSUMIT [Concomitant]
     Active Substance: MACITENTAN
     Indication: PULMONARY ARTERIAL HYPERTENSION
     Dosage: 10 MG, UNKNOWN
     Route: 065
  20. PREDONINE [Concomitant]
     Active Substance: PREDNISOLONE
     Indication: SYSTEMIC SCLERODERMA
     Dosage: 5 MG, UNKNOWN
     Dates: start: 20160726
  21. EDIROL [Concomitant]
     Active Substance: ELDECALCITOL
     Indication: OSTEOPOROSIS
     Dosage: 0.75 UG, UNKNOWN
  22. NEUROVITAN [CYANOCOBALAMIN;OCTOTIAMINE;PYRIDO [Concomitant]
     Indication: NEUROPATHY PERIPHERAL
     Dosage: 2 DOSAGE FORM, UNKNOWN
  23. FERROMIA [Concomitant]
     Active Substance: SODIUM FERROUS CITRATE
     Indication: ANAEMIA MACROCYTIC
     Dosage: UNK, UNKNOWN
     Dates: start: 20200526
  24. UPTRAVI [Suspect]
     Active Substance: SELEXIPAG
     Indication: PULMONARY ARTERIAL HYPERTENSION
     Dosage: 0.2 MG, DAILY
     Route: 048
     Dates: start: 20180116, end: 20180129
  25. RISEDRONATE NA [Concomitant]
     Active Substance: RISEDRONATE SODIUM
     Dosage: UNK, UNKNOWN
  26. TIMOLOL XE [Concomitant]
     Active Substance: TIMOLOL
     Indication: GLAUCOMA
     Dosage: UNK
  27. MUCOFILIN [Concomitant]
     Indication: INTERSTITIAL LUNG DISEASE
     Dosage: UNK, UNKNOWN
  28. AMLODIPINE [AMLODIPINE BESILATE] [Concomitant]
     Active Substance: AMLODIPINE BESYLATE
     Indication: HYPERTENSION
     Dosage: 2.5 MG, UNKNOWN
     Dates: start: 20180423

REACTIONS (13)
  - Oesophageal candidiasis [Recovering/Resolving]
  - Haemoglobin decreased [Recovering/Resolving]
  - Faeces soft [Recovered/Resolved]
  - Pericoronitis [Recovered/Resolved]
  - Dyspnoea [Recovered/Resolved]
  - Dental caries [Recovered/Resolved]
  - Hypotension [Recovering/Resolving]
  - Hypotension [Recovering/Resolving]
  - Varicose vein [Recovering/Resolving]
  - Clostridium difficile colitis [Recovered/Resolved]
  - Left ventricular failure [Recovering/Resolving]
  - Lymphoma [Recovered/Resolved]
  - Diarrhoea [Unknown]

NARRATIVE: CASE EVENT DATE: 2018
